FAERS Safety Report 8780898 (Version 2)
Quarter: 2013Q1

REPORT INFORMATION
  Report Type: Spontaneous
  Country: JP (occurrence: JP)
  Receive Date: 20120913
  Receipt Date: 20130311
  Transmission Date: 20140127
  Serious: Yes (Hospitalization)
  Sender: FDA-Public Use
  Company Number: JP-ELI_LILLY_AND_COMPANY-JP201208000013

PATIENT
  Age: 76 Year
  Sex: Female

DRUGS (3)
  1. FORTEO [Suspect]
     Route: 058
  2. FORTEO [Suspect]
     Dosage: UNK
     Route: 058
  3. FORTEO [Suspect]
     Dosage: UNK
     Route: 058
     Dates: end: 201301

REACTIONS (7)
  - Fall [Recovered/Resolved]
  - Contusion [Recovered/Resolved]
  - Malaise [Unknown]
  - Bone pain [Not Recovered/Not Resolved]
  - Kyphosis [Not Recovered/Not Resolved]
  - Back pain [Not Recovered/Not Resolved]
  - Memory impairment [Not Recovered/Not Resolved]
